FAERS Safety Report 25853292 (Version 1)
Quarter: 2025Q3

REPORT INFORMATION
  Report Type: Report from Study
  Country: US (occurrence: US)
  Receive Date: 20250926
  Receipt Date: 20250926
  Transmission Date: 20251021
  Serious: Yes (Other)
  Sender: SYNDAX
  Company Number: US-SYNDAX PHARMACEUTICALS, INC.-2025US000725

PATIENT

DRUGS (2)
  1. REVUFORJ [Suspect]
     Active Substance: REVUMENIB CITRATE
     Indication: Acute myeloid leukaemia
     Route: 065
  2. REVUFORJ [Suspect]
     Active Substance: REVUMENIB CITRATE
     Indication: Acute lymphocytic leukaemia

REACTIONS (1)
  - Cardiac disorder [Unknown]
